FAERS Safety Report 14017960 (Version 9)
Quarter: 2019Q1

REPORT INFORMATION
  Report Type: Report from Study
  Country: GB (occurrence: GB)
  Receive Date: 20170928
  Receipt Date: 20190308
  Transmission Date: 20190417
  Serious: Yes (Hospitalization)
  Sender: FDA-Public Use
  Company Number: GB-ROCHE-1997842

PATIENT
  Sex: Male

DRUGS (4)
  1. CARBOCISTEINE [Concomitant]
     Active Substance: CARBOCYSTEINE
     Route: 065
  2. METFORMIN [Concomitant]
     Active Substance: METFORMIN HYDROCHLORIDE
     Route: 048
  3. ESBRIET [Suspect]
     Active Substance: PIRFENIDONE
     Indication: IDIOPATHIC PULMONARY FIBROSIS
     Route: 048
     Dates: start: 20150701
  4. METOPROLOL. [Concomitant]
     Active Substance: METOPROLOL
     Route: 065

REACTIONS (12)
  - Dyspepsia [Unknown]
  - Dyspnoea [Unknown]
  - Throat irritation [Unknown]
  - Infection [Recovered/Resolved]
  - Wheezing [Unknown]
  - Cough [Unknown]
  - Productive cough [Unknown]
  - Sneezing [Unknown]
  - Fatigue [Unknown]
  - Dyspnoea exertional [Recovering/Resolving]
  - Ill-defined disorder [Unknown]
  - Lower respiratory tract infection [Unknown]
